FAERS Safety Report 20731578 (Version 1)
Quarter: 2022Q2

REPORT INFORMATION
  Report Type: Spontaneous
  Country: US (occurrence: None)
  Receive Date: 20220420
  Receipt Date: 20220420
  Transmission Date: 20220721
  Serious: No
  Sender: FDA-Public Use
  Company Number: None

PATIENT
  Age: 56 Year
  Weight: 54 kg

DRUGS (10)
  1. QULIPTA [Suspect]
     Active Substance: ATOGEPANT
     Indication: Migraine
     Dosage: OTHER QUANTITY : 30 TABLET(S);?
     Route: 048
     Dates: start: 20220228, end: 20220323
  2. QULIPTA [Concomitant]
     Active Substance: ATOGEPANT
  3. ALMOTRIPTAN [Concomitant]
     Active Substance: ALMOTRIPTAN
  4. IMVEXXY [Concomitant]
     Active Substance: ESTRADIOL
  5. VITAMIN D NOS [Concomitant]
     Active Substance: VITAMIN D NOS
  6. VIT K2 [Concomitant]
  7. ADEMETIONINE [Concomitant]
     Active Substance: ADEMETIONINE
  8. NAC [Concomitant]
  9. LITHIUM ORITATE [Concomitant]
  10. VITAMINS [Concomitant]
     Active Substance: VITAMINS

REACTIONS (5)
  - Constipation [None]
  - Gastrooesophageal reflux disease [None]
  - Blood pressure increased [None]
  - Skin burning sensation [None]
  - Agitation [None]

NARRATIVE: CASE EVENT DATE: 20220323
